FAERS Safety Report 18968168 (Version 3)
Quarter: 2021Q2

REPORT INFORMATION
  Report Type: Spontaneous
  Country: US (occurrence: US)
  Receive Date: 20210304
  Receipt Date: 20210517
  Transmission Date: 20210717
  Serious: Yes (Hospitalization, Other)
  Sender: FDA-Public Use
  Company Number: US-HIKMA PHARMACEUTICALS USA INC.-US-H14001-21-00917

PATIENT
  Age: 59 Year
  Sex: Female
  Weight: 89.1 kg

DRUGS (9)
  1. VANCOMYCIN [Concomitant]
     Active Substance: VANCOMYCIN
     Indication: SEPSIS
     Route: 042
     Dates: start: 20210124
  2. ABRAXANE [Suspect]
     Active Substance: PACLITAXEL
     Indication: INFECTION
     Route: 042
     Dates: start: 20200709, end: 20210309
  3. CEFAZOLIN [Concomitant]
     Active Substance: CEFAZOLIN
     Dosage: 2 G/20 ML
     Route: 042
     Dates: start: 20210201
  4. CEFAZOLIN [Concomitant]
     Active Substance: CEFAZOLIN
     Indication: INFECTION
     Route: 014
     Dates: start: 20210201, end: 20210212
  5. GEMCITABINE. [Suspect]
     Active Substance: GEMCITABINE
     Indication: PANCREATIC CARCINOMA
     Route: 042
     Dates: start: 20200709, end: 20210113
  6. CEFEPIME [Concomitant]
     Active Substance: CEFEPIME HYDROCHLORIDE
     Indication: SEPSIS
     Route: 042
     Dates: start: 20210124, end: 20210131
  7. LEUCOVORIN. [Suspect]
     Active Substance: LEUCOVORIN
     Indication: PANCREATIC CARCINOMA
     Dosage: 1.15 OF 28?DAY CYCLE
     Route: 042
     Dates: start: 20200709, end: 20201118
  8. IRINOTECAN [Suspect]
     Active Substance: IRINOTECAN
     Indication: PANCREATIC CARCINOMA
     Route: 042
     Dates: start: 20200709, end: 20201118
  9. FLUOROURACIL. [Suspect]
     Active Substance: FLUOROURACIL
     Indication: PANCREATIC CARCINOMA
     Dosage: 1.15 OF 28?DAY CYCLE
     Route: 042
     Dates: start: 20200709, end: 20201118

REACTIONS (9)
  - Oedema peripheral [Recovered/Resolved]
  - Pneumonia klebsiella [Unknown]
  - Escherichia infection [Not Recovered/Not Resolved]
  - Joint swelling [Not Recovered/Not Resolved]
  - Cholangitis [Unknown]
  - Leukocytosis [Unknown]
  - Sepsis [Not Recovered/Not Resolved]
  - Arthritis bacterial [Not Recovered/Not Resolved]
  - Gait disturbance [Not Recovered/Not Resolved]

NARRATIVE: CASE EVENT DATE: 20210124
